FAERS Safety Report 8933394 (Version 1)
Quarter: 2012Q4

REPORT INFORMATION
  Report Type: 
  Country: GB (occurrence: GB)
  Receive Date: 20121128
  Receipt Date: 20121128
  Transmission Date: 20130627
  Serious: Yes (Other)
  Sender: FDA-Public Use
  Company Number: GB-009507513-1211GBR010072

PATIENT

DRUGS (1)
  1. JANUMET [Suspect]

REACTIONS (4)
  - Neoplasm malignant [Unknown]
  - Drug administration error [Unknown]
  - Gastrointestinal tube insertion [Unknown]
  - Wrong technique in drug usage process [Unknown]
